FAERS Safety Report 16139949 (Version 1)
Quarter: 2019Q1

REPORT INFORMATION
  Report Type: Spontaneous
  Country: US (occurrence: US)
  Receive Date: 20190226
  Receipt Date: 20190226
  Transmission Date: 20190418
  Serious: No
  Sender: FDA-Public Use
  Company Number: None

PATIENT
  Age: 65 Year
  Sex: Female

DRUGS (1)
  1. GLATIRAMER 20MG PFS INJ (30/BOX) [Suspect]
     Active Substance: GLATIRAMER
     Route: 058
     Dates: start: 201801

REACTIONS (4)
  - Injection site erythema [None]
  - Injection site mass [None]
  - Injection site reaction [None]
  - Injection site rash [None]

NARRATIVE: CASE EVENT DATE: 20190219
